FAERS Safety Report 5537386-0 (Version None)
Quarter: 2007Q4

REPORT INFORMATION
  Report Type: 
  Country: None (occurrence: None)
  Receive Date: 20071207
  Receipt Date: 20071127
  Transmission Date: 20080405
  Serious: Yes (Other)
  Sender: FDA-Public Use
  Company Number: A0697975A

PATIENT
  Sex: Female

DRUGS (9)
  1. SEREVENT [Suspect]
     Indication: CHRONIC OBSTRUCTIVE PULMONARY DISEASE
     Route: 055
     Dates: start: 20060501, end: 20060101
  2. FLOVENT [Suspect]
     Indication: CHRONIC OBSTRUCTIVE PULMONARY DISEASE
     Route: 055
     Dates: start: 20060501, end: 20070601
  3. XOPENEX [Suspect]
     Route: 055
  4. ANTIBIOTIC [Concomitant]
     Indication: SINUSITIS
     Dates: start: 20060501, end: 20060101
  5. PREDNISONE TAB [Concomitant]
  6. ALBUTEROL + IPRATROPIUM BROMIDE [Concomitant]
  7. INDAPAMIDE [Concomitant]
  8. SIMETHICONE [Concomitant]
  9. TIOTROPIUM [Concomitant]

REACTIONS (5)
  - FEELING ABNORMAL [None]
  - MUSCLE SPASMS [None]
  - NIGHT SWEATS [None]
  - PITTING OEDEMA [None]
  - PSORIATIC ARTHROPATHY [None]
